FAERS Safety Report 15258881 (Version 1)
Quarter: 2018Q3

REPORT INFORMATION
  Report Type: Spontaneous
  Country: US (occurrence: US)
  Receive Date: 20180718
  Receipt Date: 20180718
  Transmission Date: 20181010
  Serious: Yes (Hospitalization, Other)
  Sender: FDA-Public Use
  Company Number: None

PATIENT
  Age: 50 Year
  Sex: Male
  Weight: 108 kg

DRUGS (1)
  1. STEEL WOODY (UNDECLARED INGREDIENT) [Suspect]
     Active Substance: SILDENAFIL
     Indication: ERECTILE DYSFUNCTION
     Dosage: ?          QUANTITY:2 DF DOSAGE FORM;?
     Route: 048
     Dates: start: 20180401, end: 20180629

REACTIONS (2)
  - Blood pressure decreased [None]
  - Syncope [None]

NARRATIVE: CASE EVENT DATE: 20180407
